FAERS Safety Report 5947264-0 (Version None)
Quarter: 2008Q4

REPORT INFORMATION
  Report Type: 
  Country: None (occurrence: None)
  Receive Date: 20081110
  Receipt Date: 20081022
  Transmission Date: 20090506
  Serious: No
  Sender: FDA-Public Use
  Company Number: US-B.I. PHARMACEUTICALS,INC./RIDGEFIELD-2007-BP-02341BP

PATIENT
  Sex: Female
  Weight: 79 kg

DRUGS (26)
  1. MIRAPEX [Suspect]
     Indication: RESTLESS LEGS SYNDROME
     Dates: start: 20020701, end: 20050701
  2. PREVACID [Concomitant]
     Indication: GASTROOESOPHAGEAL REFLUX DISEASE
  3. IMITREX [Concomitant]
     Indication: MIGRAINE
  4. CYMBALTA [Concomitant]
     Indication: DEPRESSION
  5. REQUIP [Concomitant]
     Indication: RESTLESS LEGS SYNDROME
     Dosage: 3MG
  6. SINGULAIR [Concomitant]
     Indication: ASTHMA
  7. PRILOSEC [Concomitant]
  8. PROTONIX [Concomitant]
  9. NEXIUM [Concomitant]
  10. CEPHALEXIN [Concomitant]
  11. TRAZODONE HCL [Concomitant]
  12. PROZAC [Concomitant]
  13. PAROXETINE HCL [Concomitant]
  14. AMBIEN [Concomitant]
  15. AVELOX [Concomitant]
  16. ACETAZOLAMIDE [Concomitant]
  17. QUINIAE SULFATE [Concomitant]
  18. BUPROPION HCL [Concomitant]
  19. ZYRTEC [Concomitant]
  20. METOCLOPRAMIDE [Concomitant]
  21. OXYCODONE HCL [Concomitant]
  22. LAMISIL [Concomitant]
  23. CELEBREX [Concomitant]
  24. OMNICEF [Concomitant]
  25. ENDODAN [Concomitant]
  26. OXYCONTIN [Concomitant]

REACTIONS (7)
  - ANXIETY [None]
  - COMPULSIVE SHOPPING [None]
  - EMOTIONAL DISTRESS [None]
  - FEAR [None]
  - OBSESSIVE-COMPULSIVE DISORDER [None]
  - PAIN [None]
  - PATHOLOGICAL GAMBLING [None]
